FAERS Safety Report 9528329 (Version 1)
Quarter: 2013Q1

REPORT INFORMATION
  Report Type: Spontaneous
  Country: US (occurrence: None)
  Receive Date: 20130314
  Receipt Date: 20130314
  Transmission Date: 20140127
  Serious: No
  Sender: FDA-Public Use
  Company Number: 1207USA002850

PATIENT
  Age: 55 Year
  Sex: Male

DRUGS (3)
  1. VICTRELIS [Suspect]
     Dates: start: 201205
  2. REBETOL [Suspect]
  3. PEGASYS [Suspect]

REACTIONS (4)
  - Flatulence [None]
  - Abdominal distension [None]
  - Dyspepsia [None]
  - Insomnia [None]
